FAERS Safety Report 4577895-4 (Version None)
Quarter: 2005Q1

REPORT INFORMATION
  Report Type: 
  Country: None (occurrence: None)
  Receive Date: 20050209
  Receipt Date: 20050121
  Transmission Date: 20050727
  Serious: Yes (Hospitalization)
  Sender: FDA-Public Use
  Company Number: GBT050101917

PATIENT
  Weight: 64 kg

DRUGS (7)
  1. GEMCITABINE HYDROCHLORIDE-IV (GEMCITABINE) [Suspect]
     Indication: NON-SMALL CELL LUNG CANCER
  2. CISPLATIN [Suspect]
     Indication: NON-SMALL CELL LUNG CANCER
  3. EPILIM (VALPROATE SODIUM) [Concomitant]
  4. MAGNESIUM OXIDE [Concomitant]
  5. DEXAMETHASONE [Concomitant]
  6. KYTRIL [Concomitant]
  7. DOMPERIDONE [Concomitant]

REACTIONS (4)
  - CEREBRAL DISORDER [None]
  - DISEASE PROGRESSION [None]
  - DRUG INTERACTION [None]
  - PARTIAL SEIZURES [None]
